FAERS Safety Report 18881094 (Version 1)
Quarter: 2021Q1

REPORT INFORMATION
  Report Type: Spontaneous
  Country: US (occurrence: US)
  Receive Date: 20210211
  Receipt Date: 20210211
  Transmission Date: 20210420
  Serious: No
  Sender: FDA-Public Use
  Company Number: US-SA-2021SA037684

PATIENT
  Age: 77 Year
  Sex: Male

DRUGS (2)
  1. DUPIXENT [Suspect]
     Active Substance: DUPILUMAB
     Indication: DERMATITIS ATOPIC
     Dosage: UNK
     Dates: start: 20210112
  2. DUPIXENT [Suspect]
     Active Substance: DUPILUMAB
     Dosage: DRUG INTERVAL DOSAGE : EVERY TWO WEEKS DRUG_DOSAGE_FORM : AUTOINJECTOR
     Dates: start: 20210128

REACTIONS (1)
  - Injection site pain [Unknown]

NARRATIVE: CASE EVENT DATE: 20210112
